FAERS Safety Report 10170816 (Version 2)
Quarter: 2014Q2

REPORT INFORMATION
  Report Type: Report from Study
  Country: US (occurrence: US)
  Receive Date: 20140514
  Receipt Date: 20140514
  Transmission Date: 20141212
  Serious: Yes (Hospitalization, Other)
  Sender: FDA-Public Use
  Company Number: US-JNJFOC-20140412399

PATIENT
  Sex: Female
  Weight: 41.73 kg

DRUGS (8)
  1. REMICADE [Suspect]
     Indication: CROHN^S DISEASE
     Route: 042
     Dates: start: 20110803, end: 20131111
  2. UCERIS [Concomitant]
     Indication: INFLAMMATORY BOWEL DISEASE
     Route: 065
     Dates: start: 20131001, end: 20131126
  3. CENTRUM SILVER [Concomitant]
     Route: 065
  4. FERROUS SULFATE [Concomitant]
     Route: 065
  5. HUMIRA [Concomitant]
     Dosage: 40 MG/0.8 ML KIT
     Route: 065
     Dates: end: 20140321
  6. KLOR-CON [Concomitant]
     Dosage: FOR ONE MONTH THEN 2 IN THE MORNING
     Route: 065
  7. PREDNISONE [Concomitant]
     Dosage: IN THE MORNING
     Route: 065
  8. SYNTHROID [Concomitant]
     Route: 065

REACTIONS (3)
  - Drug ineffective [Recovering/Resolving]
  - Large intestinal stenosis [Unknown]
  - Stoma site haemorrhage [Unknown]
